FAERS Safety Report 4953984-7 (Version None)
Quarter: 2006Q1

REPORT INFORMATION
  Report Type: 
  Country: None (occurrence: None)
  Receive Date: 20060321
  Receipt Date: 20060314
  Transmission Date: 20060701
  Serious: Yes (Other)
  Sender: FDA-Public Use
  Company Number: 13597

PATIENT
  Age: 77 Year
  Sex: Male
  Weight: 61 kg

DRUGS (6)
  1. DACARBAZINE [Suspect]
     Indication: MALIGNANT MELANOMA STAGE IV
     Dosage: 1400 MG IV
     Route: 042
     Dates: start: 20060203
  2. BOSENTAN 500 MG BID OR PLACEBO (CODE NOT BROKEN) [Suspect]
     Indication: MALIGNANT MELANOMA STAGE IV
     Dosage: 500 MG BID PO
     Route: 048
     Dates: start: 20060203
  3. IRBESARTAN [Concomitant]
  4. ASPIRIN [Concomitant]
  5. COLOXYL /00061602/ [Concomitant]
  6. COLOXYL WITH SEENA [Concomitant]

REACTIONS (2)
  - DRUG TOXICITY [None]
  - NEUTROPENIA [None]
